FAERS Safety Report 7497464-6 (Version None)
Quarter: 2011Q2

REPORT INFORMATION
  Report Type: 
  Country: None (occurrence: None)
  Receive Date: 20110523
  Receipt Date: 20110510
  Transmission Date: 20111010
  Serious: Yes (Hospitalization)
  Sender: FDA-Public Use
  Company Number: US-ELI_LILLY_AND_COMPANY-US201105003916

PATIENT
  Age: 74 Year
  Sex: Female

DRUGS (25)
  1. FORTEO [Suspect]
     Indication: OSTEOPOROSIS
     Dosage: 20 UG, QD
  2. TEGRETOL [Concomitant]
  3. JANUVIA [Concomitant]
  4. NORVASC [Concomitant]
  5. NYSTATIN [Concomitant]
  6. RESTORIL [Concomitant]
  7. ASCORBIC ACID [Concomitant]
  8. ALBUTEROL SULFATE AUTOHALER [Concomitant]
  9. XANAX [Concomitant]
  10. ROBITUSSIN AC                      /00693301/ [Concomitant]
  11. COZAAR [Concomitant]
  12. PRILOSEC [Concomitant]
  13. COUMADIN [Concomitant]
  14. VICODIN [Concomitant]
  15. MILK OF MAGNESIA TAB [Concomitant]
  16. REGLAN [Concomitant]
  17. VITAMIN B COMPLEX CAP [Concomitant]
  18. TYLENOL (CAPLET) [Concomitant]
  19. DULCOLAX [Concomitant]
  20. CALCIUM CARBONATE [Concomitant]
  21. ZOFRAN [Concomitant]
  22. PREDNISONE [Concomitant]
  23. DIFLUCAN [Concomitant]
  24. MAALOX [Concomitant]
  25. ZOSYN [Concomitant]

REACTIONS (2)
  - ACUTE RESPIRATORY FAILURE [None]
  - PULMONARY EMBOLISM [None]
